FAERS Safety Report 5355198-8 (Version None)
Quarter: 2007Q2

REPORT INFORMATION
  Report Type: 
  Country: None (occurrence: None)
  Receive Date: 20070611
  Receipt Date: 20070313
  Transmission Date: 20071010
  Serious: Yes (Other)
  Sender: FDA-Public Use
  Company Number: CHPA2007US03436

PATIENT
  Age: 2 Year
  Sex: Female
  Weight: 11.3 kg

DRUGS (2)
  1. TRIAMINIC CHEST CONGESTION NO PSE (NCH) (GUAIFENESIN) SYRUP [Suspect]
     Dosage: SEE IMAGE
     Route: 048
     Dates: start: 20070301, end: 20070301
  2. TRIAMINIC CHEST CONGESTION NO PSE (NCH) (GUAIFENESIN) SYRUP [Suspect]
     Dosage: SEE IMAGE
     Route: 048
     Dates: start: 20070301, end: 20070301

REACTIONS (2)
  - ACCIDENTAL DRUG INTAKE BY CHILD [None]
  - HALLUCINATION, VISUAL [None]
